FAERS Safety Report 5953225-8 (Version None)
Quarter: 2008Q4

REPORT INFORMATION
  Report Type: 
  Country: None (occurrence: None)
  Receive Date: 20081031
  Receipt Date: 20080925
  Transmission Date: 20090506
  Serious: Yes (Other)
  Sender: FDA-Public Use
  Company Number: US-WYE-H06145008

PATIENT
  Age: 54 Year
  Sex: Female
  Weight: 79.45 kg

DRUGS (7)
  1. PREMARIN [Suspect]
     Indication: VULVOVAGINAL DRYNESS
     Dosage: 1 GRAM 2-3X PER WEEK, VAGINAL
     Route: 067
     Dates: start: 20050901, end: 20080301
  2. LIPITOR [Concomitant]
  3. LISINOPRIL [Concomitant]
  4. TRICOR [Concomitant]
  5. LASIX [Concomitant]
  6. CIMETIDINE [Concomitant]
  7. HYDROCHLOROTHIAZIDE [Concomitant]

REACTIONS (1)
  - VISION BLURRED [None]
